FAERS Safety Report 20539677 (Version 1)
Quarter: 2022Q1

REPORT INFORMATION
  Report Type: Spontaneous
  Country: KE (occurrence: KE)
  Receive Date: 20220302
  Receipt Date: 20220302
  Transmission Date: 20220423
  Serious: Yes (Hospitalization)
  Sender: FDA-Public Use
  Company Number: KE-JNJFOC-20211118984

PATIENT
  Age: 26 Year
  Sex: Female
  Weight: 58 kg

DRUGS (3)
  1. INVEGA SUSTENNA [Suspect]
     Active Substance: PALIPERIDONE PALMITATE
     Indication: Schizophrenia
     Route: 030
     Dates: start: 20200827
  2. INVEGA SUSTENNA [Suspect]
     Active Substance: PALIPERIDONE PALMITATE
  3. INVEGA SUSTENNA [Suspect]
     Active Substance: PALIPERIDONE PALMITATE

REACTIONS (2)
  - Malaise [Recovering/Resolving]
  - Dizziness [Unknown]

NARRATIVE: CASE EVENT DATE: 20211021
